FAERS Safety Report 5168371-9 (Version None)
Quarter: 2006Q4

REPORT INFORMATION
  Report Type: 
  Country: None (occurrence: None)
  Receive Date: 20061208
  Receipt Date: 20061129
  Transmission Date: 20070319
  Serious: Yes (Disabling)
  Sender: FDA-Public Use
  Company Number: AU-ROCHE-472851

PATIENT
  Age: 42 Year
  Sex: Male
  Weight: 95 kg

DRUGS (4)
  1. PEG-INTERFERON ALFA 2A (RO 25-8310) [Suspect]
     Dosage: TREATMENT STOPPED AT TWELVE WEEKS AS PER PROTOCOL. DOSAGE FORM WAS VIAL AS PER PROTOCOL.
     Route: 058
     Dates: start: 20060729, end: 20061018
  2. PEG-INTERFERON ALFA 2A (RO 25-8310) [Suspect]
     Dosage: DOSAGE FORM WAS PRE-FILLED SYRINGE AS PER PROTOCOL.
     Route: 058
     Dates: start: 20061019
  3. RIBAVIRIN [Suspect]
     Route: 048
     Dates: start: 20060729
  4. NEUROFEN [Concomitant]
     Dates: start: 20060726

REACTIONS (1)
  - OPTIC ISCHAEMIC NEUROPATHY [None]
